FAERS Safety Report 5648936-8 (Version None)
Quarter: 2008Q1

REPORT INFORMATION
  Report Type: 
  Country: None (occurrence: None)
  Receive Date: 20080304
  Receipt Date: 20080222
  Transmission Date: 20080703
  Serious: Yes (Hospitalization)
  Sender: FDA-Public Use
  Company Number: US-JNJFOC-20080205915

PATIENT
  Sex: Female
  Weight: 70.31 kg

DRUGS (13)
  1. FENTANYL TRANSDERMAL SYSTEM [Suspect]
     Indication: ARTHRALGIA
     Route: 062
  2. FENTANYL TRANSDERMAL SYSTEM [Suspect]
     Route: 062
  3. FENTANYL TRANSDERMAL SYSTEM [Suspect]
     Route: 062
  4. FENTANYL TRANSDERMAL SYSTEM [Suspect]
     Route: 062
  5. FENTANYL TRANSDERMAL SYSTEM [Suspect]
     Dosage: 1X 100 UG/HR PATCH PLUS 1X 25 UG/HR PATCH
     Route: 062
  6. FENTANYL TRANSDERMAL SYSTEM [Suspect]
     Route: 062
  7. FENTANYL TRANSDERMAL SYSTEM [Suspect]
     Indication: ARTHRALGIA
     Route: 062
  8. LISINOPRIL [Concomitant]
     Indication: HYPERTENSION
     Route: 048
  9. PROZAC [Concomitant]
     Indication: DEPRESSION
     Route: 048
  10. DEMADEX [Concomitant]
     Indication: FLUID RETENTION
     Route: 048
  11. CRESTOR [Concomitant]
     Indication: BLOOD CHOLESTEROL INCREASED
     Route: 048
  12. POTASSIUM CHLORIDE [Concomitant]
     Indication: MINERAL SUPPLEMENTATION
     Route: 048
  13. METHADONE HCL [Concomitant]
     Indication: PAIN
     Dosage: AS NEEDED
     Route: 048

REACTIONS (4)
  - ANXIETY [None]
  - HEART RATE INCREASED [None]
  - HIP SURGERY [None]
  - NERVOUSNESS [None]
